FAERS Safety Report 12888524 (Version 10)
Quarter: 2018Q4

REPORT INFORMATION
  Report Type: Spontaneous
  Country: US (occurrence: US)
  Receive Date: 20161027
  Receipt Date: 20181231
  Transmission Date: 20190204
  Serious: No
  Sender: FDA-Public Use
  Company Number: US-PFIZER INC-2016497975

PATIENT
  Age: 14 Year
  Sex: Female
  Weight: 31 kg

DRUGS (6)
  1. GENOTROPIN [Suspect]
     Active Substance: SOMATROPIN
     Dosage: 1.5 MG, DAILY
  2. GENOTROPIN [Suspect]
     Active Substance: SOMATROPIN
     Indication: HYPOPITUITARISM
     Dosage: 1.1 MG, DAILY
     Dates: start: 20160217
  3. GENOTROPIN [Suspect]
     Active Substance: SOMATROPIN
     Dosage: UNK
  4. GENOTROPIN [Suspect]
     Active Substance: SOMATROPIN
     Dosage: 1.3 MG, DAILY
     Dates: start: 20160501
  5. GENOTROPIN [Suspect]
     Active Substance: SOMATROPIN
     Indication: BODY HEIGHT BELOW NORMAL
     Dosage: 1.3 ML, 1X/DAY
     Dates: start: 20160327
  6. GENOTROPIN [Suspect]
     Active Substance: SOMATROPIN
     Dosage: 1.5 ML, 1X/DAY
     Dates: start: 201603

REACTIONS (7)
  - Drug effect incomplete [Recovering/Resolving]
  - Cortisol increased [Unknown]
  - Blood luteinising hormone decreased [Unknown]
  - Aspartate aminotransferase decreased [Unknown]
  - Blood potassium decreased [Unknown]
  - Blood follicle stimulating hormone decreased [Unknown]
  - Blood alkaline phosphatase increased [Unknown]

NARRATIVE: CASE EVENT DATE: 20180511
